FAERS Safety Report 4317278-5 (Version None)
Quarter: 2004Q1

REPORT INFORMATION
  Report Type: 
  Country: None (occurrence: None)
  Receive Date: 20040312
  Receipt Date: 20040226
  Transmission Date: 20041129
  Serious: Yes (Death)
  Sender: FDA-Public Use
  Company Number: A-CH2004-05266

PATIENT
  Age: 39 Year
  Sex: Female

DRUGS (6)
  1. TRACLEER [Suspect]
     Indication: PULMONARY HYPERTENSION
     Dosage: SEE IMAGE
     Route: 048
     Dates: start: 20021201, end: 20030101
  2. TRACLEER [Suspect]
     Indication: PULMONARY HYPERTENSION
     Dosage: SEE IMAGE
     Route: 048
     Dates: start: 20030101, end: 20040101
  3. ILOPROST (ILOPROST) [Concomitant]
  4. HEPARIN [Concomitant]
  5. DIGOXIN [Concomitant]
  6. DIURETICS [Concomitant]

REACTIONS (5)
  - CARDIOMEGALY [None]
  - CHOLECYSTITIS [None]
  - PULMONARY HYPERTENSION [None]
  - VASODILATATION [None]
  - VENTRICULAR HYPOKINESIA [None]
